FAERS Safety Report 7713659-8 (Version None)
Quarter: 2011Q3

REPORT INFORMATION
  Report Type: 
  Country: None (occurrence: None)
  Receive Date: 20110826
  Receipt Date: 20110823
  Transmission Date: 20111222
  Serious: Yes (Hospitalization)
  Sender: FDA-Public Use
  Company Number: DE-PFIZER INC-2011186040

PATIENT
  Age: 67 Year
  Sex: Female
  Weight: 70 kg

DRUGS (16)
  1. BLINDED EPLERENONE [Suspect]
     Indication: ACUTE MYOCARDIAL INFARCTION
     Dosage: BLINDED THERAPY; ONCE PER DAY
     Route: 048
     Dates: start: 20110802, end: 20110811
  2. TICAGRELOR [Concomitant]
     Indication: PROPHYLAXIS
     Dosage: 90 MG, 2X/DAY
     Route: 048
     Dates: start: 20110803, end: 20110811
  3. ENOXAPARIN [Concomitant]
     Indication: PROPHYLAXIS
     Dosage: 4000 IU, 1X/DAY
     Route: 058
     Dates: start: 20110803
  4. CALCIGEN D [Concomitant]
     Indication: OSTEOPOROSIS
     Dosage: CALCIUM CARBONATE 600 MG/COLECALCIFEROL, 1X/DAY
     Route: 048
     Dates: start: 20080101
  5. PANTOPRAZOLE [Suspect]
     Indication: GASTROOESOPHAGEAL REFLUX DISEASE
     Dosage: 40 MG, 1X/DAY
     Route: 048
     Dates: start: 20110802, end: 20110808
  6. BISOPROLOL FUMARATE [Concomitant]
     Dosage: 2.5 MG, 1X/DAY
     Route: 048
     Dates: start: 20110811
  7. SIMVASTATIN [Concomitant]
     Indication: HYPERCHOLESTEROLAEMIA
     Dosage: 40 MG, 1X/DAY
     Route: 048
     Dates: start: 20110802
  8. ASPIRIN [Concomitant]
     Indication: ACUTE MYOCARDIAL INFARCTION
     Dosage: 100 MG, SINGLE
     Route: 042
     Dates: start: 20110802, end: 20110802
  9. INTEGRILIN [Concomitant]
     Indication: PROPHYLAXIS
     Dosage: 12.4 MG, SINGLE
     Route: 042
     Dates: start: 20110802, end: 20110802
  10. BLINDED NO SUBJECT DRUG [Suspect]
     Indication: ACUTE MYOCARDIAL INFARCTION
     Dosage: BLINDED THERAPY; ONCE PER DAY
     Route: 048
     Dates: start: 20110802, end: 20110811
  11. OLMESARTAN MEDOXOMIL [Concomitant]
     Indication: HYPERTENSION
     Dosage: 40 MG, 1X/DAY
     Route: 048
     Dates: start: 20090401, end: 20110805
  12. BLINDED PLACEBO [Suspect]
     Indication: ACUTE MYOCARDIAL INFARCTION
     Dosage: BLINDED THERAPY; ONCE PER DAY
     Route: 048
     Dates: start: 20110802, end: 20110811
  13. BISOPROLOL FUMARATE [Concomitant]
     Indication: HYPERTENSION
     Dosage: 2.5 MG, 1X/DAY
     Route: 048
     Dates: start: 20110802, end: 20110804
  14. ENOXAPARIN SODIUM [Concomitant]
     Indication: PROPHYLAXIS
     Dosage: 4000 IU, 1X/DAY
     Route: 058
     Dates: start: 20110803, end: 20110812
  15. HEPARIN [Concomitant]
     Indication: PROPHYLAXIS
     Dosage: 500 MG
     Route: 042
     Dates: start: 20110802, end: 20110803
  16. INTEGRILIN [Concomitant]
     Dosage: 4.125 MG/H
     Route: 042
     Dates: start: 20110802, end: 20110803

REACTIONS (1)
  - LONG QT SYNDROME [None]
